FAERS Safety Report 10143234 (Version 1)
Quarter: 2014Q2

REPORT INFORMATION
  Report Type: Spontaneous
  Country: US (occurrence: None)
  Receive Date: 20140429
  Receipt Date: 20140429
  Transmission Date: 20141212
  Serious: Yes (Life-Threatening, Disabling)
  Sender: FDA-Public Use
  Company Number: None

PATIENT
  Age: 6 Year
  Sex: Female
  Weight: 28.12 kg

DRUGS (1)
  1. L-CITRULLINE [Suspect]
     Indication: ORNITHINE TRANSCARBAMOYLASE DEFICIENCY
     Route: 048
     Dates: start: 20090601, end: 20140428

REACTIONS (1)
  - Laboratory test abnormal [None]
